FAERS Safety Report 23775167 (Version 1)
Quarter: 2024Q2

REPORT INFORMATION
  Report Type: Report from Study
  Country: CA (occurrence: CA)
  Receive Date: 20240423
  Receipt Date: 20240423
  Transmission Date: 20240716
  Serious: Yes (Other)
  Sender: FDA-Public Use
  Company Number: CA-AKCEA THERAPEUTICS, INC.-2024IS003561

PATIENT

DRUGS (11)
  1. TEGSEDI [Suspect]
     Active Substance: INOTERSEN SODIUM
     Indication: Hereditary neuropathic amyloidosis
     Dosage: 284 MILLIGRAM, QOW
     Route: 058
  2. TEGSEDI [Suspect]
     Active Substance: INOTERSEN SODIUM
     Dosage: 284 MILLIGRAM, QW
     Route: 058
     Dates: start: 20221128, end: 20230116
  3. RETINOL [Concomitant]
     Active Substance: RETINOL
     Indication: Vitamin supplementation
     Dosage: 3000 INTERNATIONAL UNIT, QD
     Route: 048
     Dates: start: 202211
  4. WARFARIN [Concomitant]
     Active Substance: WARFARIN
     Indication: Anticoagulant therapy
     Dosage: 4/5 DAILY
     Route: 048
  5. PATISIRAN [Concomitant]
     Active Substance: PATISIRAN
     Indication: Product used for unknown indication
     Dosage: UNK
     Route: 065
     Dates: start: 2021, end: 202107
  6. ONPATTRO [Concomitant]
     Active Substance: PATISIRAN SODIUM
     Indication: Product used for unknown indication
     Dosage: UNK
     Route: 042
     Dates: start: 2021, end: 202107
  7. DEXAMETHASONE [Concomitant]
     Active Substance: DEXAMETHASONE
     Indication: Premedication
     Dosage: 10 MILLIGRAM, TAKE ONE DOSE 1-2 HOURS BEFORE TEGSEDI INJECTION
     Route: 065
     Dates: start: 20221128
  8. BENADRYL [Concomitant]
     Active Substance: DIPHENHYDRAMINE HYDROCHLORIDE
     Indication: Premedication
     Dosage: 50 MILLIGRAM, TAKE ONE DOSE 1-2 HOURS BEFORE TEGSEDI INJECTION
     Route: 065
     Dates: start: 20221128
  9. FAMOTIDINE [Concomitant]
     Active Substance: FAMOTIDINE
     Indication: Premedication
     Dosage: 20 MILLIGRAM, BID
     Route: 065
  10. FAMOTIDINE [Concomitant]
     Active Substance: FAMOTIDINE
     Dosage: 40 MILLIGRAM, TAKE ONE DOSE 1-2 HOURSE BEFORE TEGSEDI INJECTION
     Route: 065
     Dates: start: 20221128
  11. ACETAMINOPHEN [Concomitant]
     Active Substance: ACETAMINOPHEN
     Indication: Premedication
     Dosage: 650 MILLIGRAM, TAKE ONE DOSE 1-2 HOURS BEFORE TEGSEDI INJECTION
     Route: 065
     Dates: start: 20221128

REACTIONS (1)
  - Localised infection [Recovering/Resolving]

NARRATIVE: CASE EVENT DATE: 20230101
